FAERS Safety Report 8256303-6 (Version None)
Quarter: 2012Q2

REPORT INFORMATION
  Report Type: 
  Country: None (occurrence: None)
  Receive Date: 20120403
  Receipt Date: 20120326
  Transmission Date: 20120825
  Serious: Yes (Other)
  Sender: FDA-Public Use
  Company Number: US-RB-036929-12

PATIENT
  Age: 28 Year
  Sex: Female

DRUGS (1)
  1. MUCINEX [Suspect]
     Indication: DRUG ABUSE
     Dosage: OVER 8 YEARS IN AMOUNTS OF UP TO 40 TABLETS A DAY
     Route: 048

REACTIONS (7)
  - EXPOSURE DURING BREAST FEEDING [None]
  - FLIGHT OF IDEAS [None]
  - INCORRECT DRUG ADMINISTRATION DURATION [None]
  - WEIGHT DECREASED [None]
  - DRUG ABUSE [None]
  - FEELING DRUNK [None]
  - MYDRIASIS [None]
